FAERS Safety Report 5920996-6 (Version None)
Quarter: 2008Q4

REPORT INFORMATION
  Report Type: 
  Country: None (occurrence: None)
  Receive Date: 20081016
  Receipt Date: 20081003
  Transmission Date: 20090506
  Serious: No
  Sender: FDA-Public Use
  Company Number: BE-JNJCH-2008025038

PATIENT
  Age: 87 Year
  Sex: Female

DRUGS (1)
  1. CETIRIZINE HYDROCHLORIDE [Suspect]
     Indication: SEASONAL ALLERGY
     Dosage: TEXT:10 MG
     Route: 048
     Dates: start: 20080910, end: 20080901

REACTIONS (1)
  - PLATELET COUNT DECREASED [None]
